FAERS Safety Report 11495281 (Version 3)
Quarter: 2015Q4

REPORT INFORMATION
  Report Type: Report from Study
  Country: DE (occurrence: DE)
  Receive Date: 20150911
  Receipt Date: 20151105
  Transmission Date: 20160304
  Serious: Yes (Other)
  Sender: FDA-Public Use
  Company Number: DE-BIOGENIDEC-2014BI135990

PATIENT
  Age: 29 Year
  Sex: Female
  Weight: 90 kg

DRUGS (1)
  1. PLEGRIDY [Suspect]
     Active Substance: PEGINTERFERON BETA-1A
     Indication: MULTIPLE SCLEROSIS
     Route: 058
     Dates: start: 20141010, end: 20141212

REACTIONS (2)
  - Maternal exposure during pregnancy [Recovered/Resolved]
  - Breech presentation [Recovered/Resolved]

NARRATIVE: CASE EVENT DATE: 20150720
